FAERS Safety Report 6810385-4 (Version None)
Quarter: 2010Q2

REPORT INFORMATION
  Report Type: 
  Country: None (occurrence: None)
  Receive Date: 20100630
  Receipt Date: 20100615
  Transmission Date: 20101027
  Serious: Yes (Other)
  Sender: FDA-Public Use
  Company Number: PHHY2010IL39141

PATIENT
  Age: 61 Year
  Sex: Female

DRUGS (4)
  1. DIOVAN HCT [Suspect]
     Indication: HYPERTENSION
     Dosage: 160/25 MG DAILY
     Route: 048
     Dates: start: 20071101
  2. BISOPROLOL FUMARATE [Concomitant]
  3. LERCANIDIPINE HYDROCHLORIDE [Concomitant]
  4. SIMVASTATIN [Concomitant]

REACTIONS (2)
  - BREAST CANCER FEMALE [None]
  - BREAST LUMP REMOVAL [None]
